FAERS Safety Report 6537510-7 (Version None)
Quarter: 2010Q1

REPORT INFORMATION
  Report Type: 
  Country: None (occurrence: None)
  Receive Date: 20100114
  Receipt Date: 20100112
  Transmission Date: 20100710
  Serious: Yes (Hospitalization)
  Sender: FDA-Public Use
  Company Number: JP-SANOFI-AVENTIS-2010SA001827

PATIENT
  Age: 80 Year

DRUGS (2)
  1. PLAVIX [Suspect]
  2. ASPIRIN [Concomitant]

REACTIONS (3)
  - BONE MARROW FAILURE [None]
  - HAEMOGLOBIN DECREASED [None]
  - PLATELET COUNT DECREASED [None]
